FAERS Safety Report 8984854 (Version 1)
Quarter: 2012Q4

REPORT INFORMATION
  Report Type: 
  Country: US (occurrence: US)
  Receive Date: 20121226
  Receipt Date: 20121226
  Transmission Date: 20130627
  Serious: Yes (Other)
  Sender: FDA-Public Use
  Company Number: US-ABBOTT-12P-163-1025868-00

PATIENT
  Sex: Female

DRUGS (3)
  1. HUMIRA [Suspect]
     Indication: CROHN^S DISEASE
     Dates: start: 200711, end: 200903
  2. HUMIRA [Suspect]
     Dates: start: 200903
  3. HUMIRA [Suspect]
     Dates: start: 201203

REACTIONS (1)
  - Abortion induced [Unknown]
